FAERS Safety Report 9128864 (Version 1)
Quarter: 2013Q1

REPORT INFORMATION
  Report Type: Spontaneous
  Country: US (occurrence: US)
  Receive Date: 20130228
  Receipt Date: 20130228
  Transmission Date: 20140127
  Serious: No
  Sender: FDA-Public Use
  Company Number: US-ABBOTT-13P-163-1031648-00

PATIENT
  Sex: Male
  Weight: 79.45 kg

DRUGS (4)
  1. ANDROGEL [Suspect]
     Indication: BLOOD TESTOSTERONE DECREASED
     Dosage: 6 PUMPS
     Route: 061
     Dates: start: 201208, end: 201210
  2. ANDROGEL [Suspect]
     Dosage: 3 TO 4 PUMPS
     Route: 061
     Dates: start: 201210
  3. NASONEX [Concomitant]
     Indication: SEASONAL ALLERGY
     Dosage: UNKNOWN
  4. ALLEGRA [Concomitant]
     Indication: SEASONAL ALLERGY
     Dosage: UNKNOWN

REACTIONS (2)
  - Pollakiuria [Recovered/Resolved]
  - Drug effect decreased [Recovered/Resolved]
